FAERS Safety Report 6994528-8 (Version None)
Quarter: 2010Q3

REPORT INFORMATION
  Report Type: 
  Country: None (occurrence: None)
  Receive Date: 20100917
  Receipt Date: 20100910
  Transmission Date: 20110219
  Serious: Yes (Other)
  Sender: FDA-Public Use
  Company Number: US-JNJCH-2010020915

PATIENT
  Age: 30 Year
  Sex: Female
  Weight: 54.4 kg

DRUGS (2)
  1. BENGAY GREASELESS [Suspect]
     Indication: PAIN
     Dosage: TEXT:NICKLE-SIZED AMOUNT 4X A DAY
     Route: 061
  2. TRAMADOL [Concomitant]
     Indication: BACK PAIN
     Dosage: TEXT:4 TABLETS ONCE A DAY
     Route: 048

REACTIONS (2)
  - APPLICATION SITE VESICLES [None]
  - CHEMICAL INJURY [None]
